FAERS Safety Report 24137345 (Version 1)
Quarter: 2024Q3

REPORT INFORMATION
  Report Type: Report from Study
  Country: IT (occurrence: IT)
  Receive Date: 20240725
  Receipt Date: 20240725
  Transmission Date: 20241016
  Serious: Yes (Hospitalization)
  Sender: EMD SERONO INC
  Company Number: None

PATIENT
  Age: 60 Year
  Sex: Female

DRUGS (6)
  1. TEPMETKO [Suspect]
     Active Substance: TEPOTINIB HYDROCHLORIDE
     Indication: Lung squamous cell carcinoma stage IV
     Route: 048
  2. DENOSUMAB [Concomitant]
     Active Substance: DENOSUMAB
     Indication: Product used for unknown indication
  3. ZOFENOPRIL [Concomitant]
     Active Substance: ZOFENOPRIL
     Indication: Hypertension
     Route: 048
  4. PRISMA [CITALOPRAM HYDROBROMIDE] [Concomitant]
     Indication: Ocular hypertension
  5. CHOLECALCIFEROL [Concomitant]
     Active Substance: CHOLECALCIFEROL
     Indication: Osteoporosis
  6. ALENDRONATE SODIUM [Concomitant]
     Active Substance: ALENDRONATE SODIUM
     Indication: Osteoporosis

REACTIONS (1)
  - Chronic kidney disease [Not Recovered/Not Resolved]

NARRATIVE: CASE EVENT DATE: 20240601
